FAERS Safety Report 20092583 (Version 2)
Quarter: 2021Q4

REPORT INFORMATION
  Report Type: Spontaneous
  Country: US (occurrence: US)
  Receive Date: 20211119
  Receipt Date: 20211125
  Transmission Date: 20220303
  Serious: No
  Sender: FDA-Public Use
  Company Number: US-SA-SAC20211115000623

PATIENT
  Sex: Female

DRUGS (7)
  1. DUPIXENT [Suspect]
     Active Substance: DUPILUMAB
     Indication: Asthma
     Dosage: 300 MG, QOW
     Route: 058
  2. BUDESONIDE [Concomitant]
     Active Substance: BUDESONIDE
  3. AZELASTINE [Concomitant]
     Active Substance: AZELASTINE
  4. APAP [Concomitant]
     Active Substance: ACETAMINOPHEN
  5. TOPIRAMATE [Concomitant]
     Active Substance: TOPIRAMATE
  6. TIZANIDINE [Concomitant]
     Active Substance: TIZANIDINE
  7. OXYCODONE/APAP [Concomitant]
     Active Substance: ACETAMINOPHEN\OXYCODONE HYDROCHLORIDE

REACTIONS (2)
  - Breast disorder [Not Recovered/Not Resolved]
  - Asthma [Not Recovered/Not Resolved]
